FAERS Safety Report 18188824 (Version 1)
Quarter: 2020Q3

REPORT INFORMATION
  Report Type: Spontaneous
  Country: US (occurrence: US)
  Receive Date: 20200825
  Receipt Date: 20200825
  Transmission Date: 20201103
  Serious: Yes (Other)
  Sender: FDA-Public Use
  Company Number: US-PFIZER INC-2020326333

PATIENT
  Sex: Female

DRUGS (1)
  1. SERTRALINE HCL [Suspect]
     Active Substance: SERTRALINE HYDROCHLORIDE
     Dosage: 100 MG, 3X/DAY

REACTIONS (6)
  - Depression [Unknown]
  - Dependence [Unknown]
  - Illness [Unknown]
  - Overdose [Unknown]
  - Suicidal behaviour [Unknown]
  - Loss of personal independence in daily activities [Unknown]
